FAERS Safety Report 7078628-2 (Version None)
Quarter: 2010Q4

REPORT INFORMATION
  Report Type: 
  Country: None (occurrence: None)
  Receive Date: 20101102
  Receipt Date: 20101029
  Transmission Date: 20110411
  Serious: Yes (Hospitalization)
  Sender: FDA-Public Use
  Company Number: GB-ELI_LILLY_AND_COMPANY-GB201010006981

PATIENT
  Age: 48 Year
  Sex: Female
  Weight: 195 kg

DRUGS (6)
  1. BYETTA [Suspect]
     Indication: DIABETES MELLITUS
     Dosage: 10 UG, UNK
     Route: 058
     Dates: start: 20100327, end: 20100921
  2. CITALOPRAM HYDROBROMIDE [Concomitant]
     Dosage: 20 MG, UNK
     Route: 048
  3. FUROSEMIDE [Concomitant]
     Dosage: 40 MG, UNK
     Route: 048
  4. MONTELUKAST [Concomitant]
     Dosage: 10 MG, UNK
     Route: 048
  5. PERINDOPRIL [Concomitant]
  6. VERAPAMIL [Concomitant]
     Dosage: 120 MG, UNK
     Route: 048

REACTIONS (2)
  - CELLULITIS [None]
  - SEPSIS [None]
